FAERS Safety Report 16167841 (Version 1)
Quarter: 2019Q2

REPORT INFORMATION
  Report Type: Spontaneous
  Country: US (occurrence: US)
  Receive Date: 20190304
  Receipt Date: 20190304
  Transmission Date: 20190711
  Serious: No
  Sender: FDA-Public Use
  Company Number: None

PATIENT
  Age: 70 Year
  Sex: Female
  Weight: 47.17 kg

DRUGS (1)
  1. FORTEO [Suspect]
     Active Substance: TERIPARATIDE
     Indication: OSTEOPOROTIC FRACTURE
     Route: 058
     Dates: start: 201808

REACTIONS (8)
  - Transfusion [None]
  - Gastrostomy [None]
  - Transfusion related complication [None]
  - Stent placement [None]
  - Procedural complication [None]
  - Post procedural infection [None]
  - Procedural haemorrhage [None]
  - Angioplasty [None]
